FAERS Safety Report 6188633-6 (Version None)
Quarter: 2009Q2

REPORT INFORMATION
  Report Type: 
  Country: None (occurrence: None)
  Receive Date: 20090513
  Receipt Date: 20090511
  Transmission Date: 20091009
  Serious: Yes (Other)
  Sender: FDA-Public Use
  Company Number: D0061591A

PATIENT
  Age: 10 Year
  Sex: Female

DRUGS (2)
  1. VIANI [Suspect]
     Indication: ASTHMA
     Route: 055
  2. FLUTIDE [Suspect]
     Route: 055

REACTIONS (2)
  - BRONCHITIS [None]
  - PNEUMONIA [None]
